FAERS Safety Report 5069196-5 (Version None)
Quarter: 2006Q3

REPORT INFORMATION
  Report Type: 
  Country: None (occurrence: None)
  Receive Date: 20060803
  Receipt Date: 20060622
  Transmission Date: 20061208
  Serious: Yes (Other)
  Sender: FDA-Public Use
  Company Number: CA-JNJFOC-20060605507

PATIENT

DRUGS (4)
  1. REMICADE [Suspect]
  2. REMICADE [Suspect]
  3. REMICADE [Suspect]
     Indication: DRUG USE FOR UNKNOWN INDICATION
  4. STEROIDS [Concomitant]

REACTIONS (2)
  - DISCOMFORT [None]
  - INFUSION RELATED REACTION [None]
